FAERS Safety Report 5349358-X (Version None)
Quarter: 2007Q2

REPORT INFORMATION
  Report Type: 
  Country: None (occurrence: None)
  Receive Date: 20070605
  Receipt Date: 20070524
  Transmission Date: 20071010
  Serious: Yes (Hospitalization)
  Sender: FDA-Public Use
  Company Number: 2007BI006116

PATIENT
  Age: 43 Year
  Sex: Female

DRUGS (1)
  1. NATALIZUMAB [Suspect]
     Indication: MULTIPLE SCLEROSIS
     Dosage: 300 MG; QM; IV
     Route: 042
     Dates: start: 20061016

REACTIONS (7)
  - CATHETER RELATED COMPLICATION [None]
  - CENTRAL LINE INFECTION [None]
  - GASTROINTESTINAL HAEMORRHAGE [None]
  - JUGULAR VEIN THROMBOSIS [None]
  - PULMONARY EMBOLISM [None]
  - SEPSIS [None]
  - URINARY TRACT INFECTION [None]
